FAERS Safety Report 12827320 (Version 1)
Quarter: 2016Q4

REPORT INFORMATION
  Report Type: Spontaneous
  Country: US (occurrence: US)
  Receive Date: 20161006
  Receipt Date: 20161006
  Transmission Date: 20170207
  Serious: No
  Sender: FDA-Public Use
  Company Number: US-INDIVIOR LIMITED-INDV-088791-2016

PATIENT
  Age: 51 Year
  Sex: Male

DRUGS (3)
  1. SUBOXONE [Suspect]
     Active Substance: BUPRENORPHINE HYDROCHLORIDE\NALOXONE HYDROCHLORIDE
     Indication: DRUG DEPENDENCE
     Dosage: 16 MG, DAILY, ABOUT 15 MONTHS
     Route: 060
     Dates: start: 201501
  2. SUBOXONE [Suspect]
     Active Substance: BUPRENORPHINE HYDROCHLORIDE\NALOXONE HYDROCHLORIDE
     Dosage: 16 MG, DAILY
     Route: 060
  3. BUNAVAIL [Suspect]
     Active Substance: BUPRENORPHINE HYDROCHLORIDE\NALOXONE HYDROCHLORIDE DIHYDRATE
     Indication: DRUG DEPENDENCE
     Dosage: UNK, FOR A WEEK
     Route: 065

REACTIONS (5)
  - Therapeutic response unexpected [Not Recovered/Not Resolved]
  - Malaise [Unknown]
  - Drug withdrawal syndrome [Unknown]
  - Back disorder [Unknown]
  - Activities of daily living impaired [Unknown]

NARRATIVE: CASE EVENT DATE: 201501
